FAERS Safety Report 4559791-1 (Version None)
Quarter: 2005Q1

REPORT INFORMATION
  Report Type: 
  Country: None (occurrence: None)
  Receive Date: 20050124
  Receipt Date: 20030130
  Transmission Date: 20050727
  Serious: Yes (Hospitalization, Disabling)
  Sender: FDA-Public Use
  Company Number: US-MERCK-0302USA00127

PATIENT
  Age: 48 Year
  Sex: Female
  Weight: 73 kg

DRUGS (17)
  1. VIOXX [Suspect]
     Indication: MERALGIA PARAESTHETICA
     Route: 048
     Dates: start: 20000110, end: 20000329
  2. PRINIVIL [Concomitant]
     Route: 048
     Dates: start: 19981101, end: 20001001
  3. LASIX [Concomitant]
     Route: 065
     Dates: start: 19981211
  4. COUMADIN [Concomitant]
     Indication: CEREBROVASCULAR ACCIDENT
     Route: 065
     Dates: start: 19981223
  5. PREMARIN [Concomitant]
     Route: 065
     Dates: start: 19850101, end: 20020901
  6. GINKGO BILOBA EXTRACT [Concomitant]
     Route: 065
     Dates: start: 19990101, end: 20000101
  7. PAMELOR [Concomitant]
     Route: 065
  8. MAGNESIUM (UNSPECIFIED) [Concomitant]
     Route: 065
  9. CALCIUM (UNSPECIFIED) [Concomitant]
     Route: 065
  10. VITAMIN B (UNSPECIFIED) [Concomitant]
     Route: 065
  11. VITAMIN E [Concomitant]
     Route: 065
  12. ASCORBIC ACID [Concomitant]
     Route: 065
  13. LEVOCARNITINE [Concomitant]
     Route: 065
  14. LANOXIN [Concomitant]
     Route: 065
  15. COENZYME Q10 [Concomitant]
     Route: 065
  16. WELLBUTRIN [Concomitant]
     Route: 065
  17. NICOTINE [Concomitant]
     Route: 065

REACTIONS (23)
  - ANXIETY [None]
  - CARDIAC FAILURE CONGESTIVE [None]
  - CARDIOACTIVE DRUG LEVEL INCREASED [None]
  - CONGESTIVE CARDIOMYOPATHY [None]
  - DEPRESSION [None]
  - DYSPEPSIA [None]
  - FIBROADENOMA OF BREAST [None]
  - GASTROINTESTINAL TRACT ADENOMA [None]
  - HAEMORRHOIDS [None]
  - HYPERLIPIDAEMIA [None]
  - HYPERTENSION [None]
  - MOOD SWINGS [None]
  - MUSCULOSKELETAL CHEST PAIN [None]
  - NIGHTMARE [None]
  - PAIN IN EXTREMITY [None]
  - PLEURISY [None]
  - SINUS TACHYCARDIA [None]
  - SNORING [None]
  - SOMNOLENCE [None]
  - SPINAL OSTEOARTHRITIS [None]
  - VENTRICULAR DYSKINESIA [None]
  - VENTRICULAR EXTRASYSTOLES [None]
  - WEIGHT INCREASED [None]
